FAERS Safety Report 15642327 (Version 2)
Quarter: 2019Q4

REPORT INFORMATION
  Report Type: Report from Study
  Country: None (occurrence: CA)
  Receive Date: 20181121
  Receipt Date: 20191129
  Transmission Date: 20200122
  Serious: Yes (Hospitalization, Other)
  Sender: FDA-Public Use
  Company Number: CA-ABBVIE-18K-028-2560500-00

PATIENT
  Age: 63 Year
  Sex: Female

DRUGS (1)
  1. HUMIRA [Suspect]
     Active Substance: ADALIMUMAB
     Indication: RHEUMATOID ARTHRITIS
     Route: 058
     Dates: start: 20070412

REACTIONS (8)
  - Finger deformity [Not Recovered/Not Resolved]
  - Mobility decreased [Recovering/Resolving]
  - Cataract [Unknown]
  - Cerebrovascular accident [Recovered/Resolved]
  - Pain [Recovering/Resolving]
  - Tremor [Recovered/Resolved]
  - Unevaluable event [Not Recovered/Not Resolved]
  - Speech disorder [Recovering/Resolving]

NARRATIVE: CASE EVENT DATE: 201807
